FAERS Safety Report 8960704 (Version 1)
Quarter: 2012Q4

REPORT INFORMATION
  Report Type: Spontaneous
  Country: US (occurrence: None)
  Receive Date: 20121207
  Receipt Date: 20121207
  Transmission Date: 20130627
  Serious: Yes (Life-Threatening, Hospitalization)
  Sender: FDA-Public Use
  Company Number: None

PATIENT
  Age: 82 Year
  Sex: Male
  Weight: 61 kg

DRUGS (4)
  1. ACETYLCYSTEINE [Suspect]
     Indication: EXACERBATION OF ASTHMA
     Dosage: 1 dose
3ml q8h prn inhal
     Route: 055
     Dates: start: 20121126, end: 20121126
  2. LEVAQUIN [Concomitant]
  3. IPRATROPIUM BROMIDE [Concomitant]
  4. ALBUTEROL [Concomitant]

REACTIONS (5)
  - Hyperhidrosis [None]
  - Chest pain [None]
  - Wheezing [None]
  - Respiratory distress [None]
  - Rash [None]
